FAERS Safety Report 13005752 (Version 1)
Quarter: 2016Q4

REPORT INFORMATION
  Report Type: Spontaneous
  Country: US (occurrence: US)
  Receive Date: 20161207
  Receipt Date: 20161207
  Transmission Date: 20170207
  Serious: No
  Sender: FDA-Public Use
  Company Number: US-ASPEN PHARMA TRADING LIMITED US-AP-2016-009120

PATIENT
  Age: 61 Year
  Sex: Male

DRUGS (2)
  1. CHLORAMBUCIL [Suspect]
     Active Substance: CHLORAMBUCIL
     Indication: CHOROIDITIS
     Route: 065
  2. CHLORAMBUCIL [Suspect]
     Active Substance: CHLORAMBUCIL
     Route: 065

REACTIONS (1)
  - Off label use [Unknown]
